FAERS Safety Report 16644840 (Version 7)
Quarter: 2020Q2

REPORT INFORMATION
  Report Type: Spontaneous
  Country: US (occurrence: US)
  Receive Date: 20190729
  Receipt Date: 20200512
  Transmission Date: 20200713
  Serious: Yes (Other)
  Sender: FDA-Public Use
  Company Number: US-SA-2019SA201819

PATIENT
  Age: 63 Year
  Sex: Female

DRUGS (1)
  1. DUPIXENT [Suspect]
     Active Substance: DUPILUMAB
     Indication: DERMATITIS ATOPIC
     Dosage: 300 MG, QOW
     Route: 058
     Dates: start: 20180327

REACTIONS (15)
  - Malaise [Unknown]
  - Skin fissures [Recovering/Resolving]
  - Asthenia [Unknown]
  - Tooth abscess [Not Recovered/Not Resolved]
  - Erythema [Not Recovered/Not Resolved]
  - Visual impairment [Unknown]
  - Cough [Unknown]
  - Periorbital irritation [Unknown]
  - Dry skin [Unknown]
  - Swelling face [Not Recovered/Not Resolved]
  - Dizziness [Not Recovered/Not Resolved]
  - Eyelid rash [Unknown]
  - Skin haemorrhage [Recovering/Resolving]
  - Chronic obstructive pulmonary disease [Unknown]
  - Erythema [Unknown]
